FAERS Safety Report 8875653 (Version 1)
Quarter: 2012Q4

REPORT INFORMATION
  Report Type: 
  Country: IN (occurrence: IN)
  Receive Date: 20121030
  Receipt Date: 20121030
  Transmission Date: 20130627
  Serious: Yes (Other)
  Sender: FDA-Public Use
  Company Number: CHPA2012IN022628

PATIENT
  Age: 70 Year
  Sex: Male

DRUGS (1)
  1. OTRIVIN [Suspect]
     Indication: NASAL CONGESTION
     Dosage: 1 DF, 3-4 times a day in each nostril
     Route: 045

REACTIONS (2)
  - Drug dependence [Not Recovered/Not Resolved]
  - Incorrect drug administration duration [Unknown]
